FAERS Safety Report 7558791-7 (Version None)
Quarter: 2011Q2

REPORT INFORMATION
  Report Type: 
  Country: None (occurrence: None)
  Receive Date: 20110621
  Receipt Date: 20110617
  Transmission Date: 20111010
  Serious: Yes (Other)
  Sender: FDA-Public Use
  Company Number: GR-BRISTOL-MYERS SQUIBB COMPANY-15808314

PATIENT
  Age: 34 Year
  Sex: Male

DRUGS (2)
  1. ABILIFY [Suspect]
     Route: 048
     Dates: start: 20110501
  2. DIAZEPAM [Concomitant]
     Dosage: TAB 5MG, DIAZEPAM, 0.5 X 1 , HALF TABLET ONCE A DAY

REACTIONS (1)
  - VERTIGO [None]
